FAERS Safety Report 9845043 (Version 2)
Quarter: 2014Q1

REPORT INFORMATION
  Report Type: Spontaneous
  Country: CH (occurrence: None)
  Receive Date: 20140122
  Receipt Date: 20140313
  Transmission Date: 20141002
  Serious: Yes (Other)
  Sender: FDA-Public Use
  Company Number: 20140005

PATIENT
  Age: 41 Year
  Sex: Female

DRUGS (2)
  1. FERINJECT [Suspect]
     Indication: IRON DEFICIENCY ANAEMIA
     Dates: start: 20130204, end: 20130204
  2. LEVAXIN [Concomitant]

REACTIONS (3)
  - Exposure during pregnancy [None]
  - Abortion spontaneous [None]
  - Maternal exposure during pregnancy [None]
